FAERS Safety Report 10680402 (Version 3)
Quarter: 2016Q4

REPORT INFORMATION
  Report Type: Spontaneous
  Country: US (occurrence: US)
  Receive Date: 20141229
  Receipt Date: 20161219
  Transmission Date: 20170206
  Serious: Yes (Hospitalization)
  Sender: FDA-Public Use
  Company Number: US-SA-2014SA001445

PATIENT
  Age: 84 Year
  Sex: Female
  Weight: 63.5 kg

DRUGS (31)
  1. DECADRON [Concomitant]
     Active Substance: DEXAMETHASONE
     Dates: start: 20111005, end: 20111005
  2. DECADRON [Concomitant]
     Active Substance: DEXAMETHASONE
     Dates: start: 20111005, end: 20111005
  3. LABETALOL HYDROCHLORIDE. [Concomitant]
     Active Substance: LABETALOL HYDROCHLORIDE
     Dates: start: 20111005, end: 20111005
  4. PROTONIX [Concomitant]
     Active Substance: PANTOPRAZOLE SODIUM
     Dates: start: 20111006, end: 20111105
  5. FISH OIL [Concomitant]
     Active Substance: FISH OIL
  6. PLAVIX [Suspect]
     Active Substance: CLOPIDOGREL BISULFATE
     Indication: PERIPHERAL ARTERIAL OCCLUSIVE DISEASE
     Route: 065
     Dates: start: 20080222, end: 20111005
  7. CADUET [Concomitant]
     Active Substance: AMLODIPINE BESYLATE\ATORVASTATIN CALCIUM
     Dosage: 20 TABLETS
  8. LABETALOL HYDROCHLORIDE. [Concomitant]
     Active Substance: LABETALOL HYDROCHLORIDE
     Dates: start: 20111005, end: 20111005
  9. ASPIRIN. [Suspect]
     Active Substance: ASPIRIN
     Route: 065
  10. TYLENOL [Concomitant]
     Active Substance: ACETAMINOPHEN
  11. NORVASC [Concomitant]
     Active Substance: AMLODIPINE BESYLATE
     Indication: BLOOD PRESSURE MEASUREMENT
     Route: 048
  12. PEPCID [Concomitant]
     Active Substance: FAMOTIDINE
     Dates: start: 20111005, end: 20111005
  13. NICARDIPINE [Concomitant]
     Active Substance: NICARDIPINE
     Dates: start: 20111005, end: 20111005
  14. DUONEB [Concomitant]
     Active Substance: ALBUTEROL SULFATE\IPRATROPIUM BROMIDE
     Dates: start: 20111005
  15. BENADRYL [Concomitant]
     Active Substance: DIPHENHYDRAMINE HYDROCHLORIDE
     Dates: start: 20111005, end: 20111005
  16. SODIUM CHLORIDE. [Concomitant]
     Active Substance: SODIUM CHLORIDE
     Dates: start: 20111005
  17. AMLODIPINE BESILATE [Concomitant]
     Active Substance: AMLODIPINE BESYLATE
     Route: 048
  18. SIMVASTATIN. [Concomitant]
     Active Substance: SIMVASTATIN
  19. SIMVASTATIN. [Concomitant]
     Active Substance: SIMVASTATIN
     Route: 048
  20. NORMODYNE [Concomitant]
     Active Substance: LABETALOL HYDROCHLORIDE
     Dates: start: 20111005, end: 20111005
  21. FOLIC ACID. [Concomitant]
     Active Substance: FOLIC ACID
     Dates: start: 20111007
  22. THIAMINE HYDROCHLORIDE. [Concomitant]
     Active Substance: THIAMINE HYDROCHLORIDE
     Dates: start: 20111007
  23. VITAMIN D/CALCIUM [Concomitant]
     Route: 048
  24. VASELINE PURE [Concomitant]
     Active Substance: PETROLATUM
     Dates: start: 20111006, end: 20111006
  25. COZAAR [Concomitant]
     Active Substance: LOSARTAN POTASSIUM
     Route: 048
  26. ATIVAN [Concomitant]
     Active Substance: LORAZEPAM
     Dates: start: 20111005
  27. ATROPINE SULFATE. [Concomitant]
     Active Substance: ATROPINE SULFATE
     Dates: start: 20111005, end: 20111104
  28. TYLENOL [Concomitant]
     Active Substance: ACETAMINOPHEN
     Dates: start: 20111006
  29. LIPITOR [Concomitant]
     Active Substance: ATORVASTATIN CALCIUM
  30. ESMOLOL HYDROCHLORIDE. [Concomitant]
     Active Substance: ESMOLOL HYDROCHLORIDE
     Dates: start: 20111005, end: 20111005
  31. MILK OF MAGNESIA [Concomitant]
     Active Substance: MAGNESIUM HYDROXIDE
     Dates: start: 20111006

REACTIONS (1)
  - Cerebral haemorrhage [Not Recovered/Not Resolved]

NARRATIVE: CASE EVENT DATE: 20111005
